FAERS Safety Report 6248874-6 (Version None)
Quarter: 2009Q2

REPORT INFORMATION
  Report Type: 
  Country: None (occurrence: None)
  Receive Date: 20090629
  Receipt Date: 20090615
  Transmission Date: 20091009
  Serious: Yes (Disabling)
  Sender: FDA-Public Use
  Company Number: PHHY2009PT24343

PATIENT
  Sex: Female

DRUGS (7)
  1. CARDIOL XL [Suspect]
     Indication: HYPERCHOLESTEROLAEMIA
     Dosage: 80 MG/DAY
     Dates: start: 20090303, end: 20090501
  2. BISOPROLOL FUMARATE [Concomitant]
     Indication: HYPERTENSION
     Dosage: 5 MG/DAY
     Route: 048
     Dates: start: 20060101
  3. OLMESARTAN MEDOXOMIL [Concomitant]
     Indication: HYPERTENSION
     Dosage: 20 MG/DAY
     Dates: start: 20060101
  4. BETAHISTINE HYDROCHLORIDE [Concomitant]
     Indication: VERTIGO
     Dosage: 48 MG/DAY
     Route: 048
     Dates: start: 20040101
  5. MONTELUKAST SODIUM [Concomitant]
     Indication: ASTHMA
     Dosage: 10 MG/DAY
     Route: 048
     Dates: start: 20070101
  6. ESTRIOL [Concomitant]
     Indication: MENOPAUSE
     Dosage: 1 UNITARY DOSE/ DAY
     Route: 067
     Dates: start: 20080101
  7. PROGLUMETACIN MALEATE [Concomitant]
     Dosage: 800 MG/DAY
     Route: 048
     Dates: start: 20090101

REACTIONS (9)
  - ANOREXIA [None]
  - BLOOD MAGNESIUM DECREASED [None]
  - BLOOD POTASSIUM INCREASED [None]
  - DEPRESSION [None]
  - LIVER DISORDER [None]
  - MUSCLE SPASMS [None]
  - MYALGIA [None]
  - RENAL INJURY [None]
  - WEIGHT DECREASED [None]
